FAERS Safety Report 14160532 (Version 1)
Quarter: 2017Q4

REPORT INFORMATION
  Report Type: Spontaneous
  Country: US (occurrence: None)
  Receive Date: 20171103
  Receipt Date: 20171103
  Transmission Date: 20180321
  Serious: No
  Sender: FDA-Public Use
  Company Number: None

PATIENT
  Age: 43 Year
  Sex: Female
  Weight: 40.82 kg

DRUGS (6)
  1. VITAMIN D3 [Concomitant]
     Active Substance: CHOLECALCIFEROL
  2. OMNISCAN [Suspect]
     Active Substance: GADODIAMIDE
  3. AYGESTIN [Concomitant]
     Active Substance: NORETHINDRONE ACETATE
  4. MULTI VITAMIN [Concomitant]
     Active Substance: VITAMINS
  5. LIBRAX [Concomitant]
     Active Substance: CHLORDIAZEPOXIDE HYDROCHLORIDE\CLIDINIUM BROMIDE
  6. DOXEPIN [Concomitant]
     Active Substance: DOXEPIN

REACTIONS (4)
  - Pain [None]
  - Toxicity to various agents [None]
  - Pain in extremity [None]
  - Hypoaesthesia [None]

NARRATIVE: CASE EVENT DATE: 20171030
